FAERS Safety Report 18104097 (Version 2)
Quarter: 2020Q3

REPORT INFORMATION
  Report Type: Report from Study
  Country: CO (occurrence: CO)
  Receive Date: 20200803
  Receipt Date: 20200828
  Transmission Date: 20201103
  Serious: Yes (Death, Hospitalization, Other)
  Sender: FDA-Public Use
  Company Number: NVSC2020CO214433

PATIENT
  Age: 29 Year
  Sex: Female

DRUGS (2)
  1. KISQALI [Suspect]
     Active Substance: RIBOCICLIB
     Indication: BREAST CANCER METASTATIC
     Dosage: 600 MG, QD
     Route: 048
  2. FEMARA [Suspect]
     Active Substance: LETROZOLE
     Indication: BREAST CANCER METASTATIC
     Dosage: 2.5 MG, QD
     Route: 048

REACTIONS (6)
  - Pulmonary oedema [Unknown]
  - Death [Fatal]
  - Illness [Unknown]
  - Hypoxia [Unknown]
  - Feeling abnormal [Unknown]
  - Choking sensation [Unknown]

NARRATIVE: CASE EVENT DATE: 202005
